FAERS Safety Report 8453688-2 (Version None)
Quarter: 2012Q2

REPORT INFORMATION
  Report Type: 
  Country: None (occurrence: None)
  Receive Date: 20120620
  Receipt Date: 20120613
  Transmission Date: 20120825
  Serious: Yes (Death, Hospitalization)
  Sender: FDA-Public Use
  Company Number: DE-ACTELION-A-US2008-19883

PATIENT

DRUGS (28)
  1. SIMVASTATIN [Concomitant]
  2. MAGNESIUM [Concomitant]
  3. ACTRAPID [Concomitant]
  4. CLARITHROMYCIN [Concomitant]
  5. VENTAVIS [Suspect]
     Dosage: 2.5 UG, 5 X DAY
     Route: 055
     Dates: end: 20090709
  6. DIFLUCAN [Concomitant]
  7. TRACLEER [Concomitant]
     Indication: PULMONARY ARTERIAL HYPERTENSION
     Dosage: 250 MG, UNK
     Route: 048
     Dates: start: 20060101, end: 20090601
  8. FRAGMIN [Concomitant]
  9. AMOXICILLIN [Concomitant]
  10. PIPERACILLIN [Concomitant]
  11. COMBACTAM [Concomitant]
  12. AMBRISENTAN [Concomitant]
  13. AMIODARONE HCL [Concomitant]
  14. SPIRONOLACTONE [Concomitant]
  15. FALICARD [Concomitant]
  16. GANCICLOVIR [Concomitant]
  17. MARCUMAR [Concomitant]
  18. PROTAPHANE [Concomitant]
  19. MEROPENEM [Concomitant]
  20. SILDENAFIL [Concomitant]
  21. TORSEMIDE [Concomitant]
  22. MIRTAZAPINE [Concomitant]
  23. CIPROFLOXACIN HYDROCHLORIDE [Concomitant]
  24. HYDROCHLOROTHIAZIDE [Concomitant]
  25. CLINDAMYCIN HCL [Concomitant]
  26. VENTAVIS [Suspect]
     Indication: PULMONARY ARTERIAL HYPERTENSION
     Dosage: 5 UG, 6 X DAY
     Route: 055
     Dates: start: 20070710
  27. DIGOXIN [Concomitant]
  28. LEVOSIMENDAN [Concomitant]

REACTIONS (25)
  - CYANOSIS [None]
  - C-REACTIVE PROTEIN INCREASED [None]
  - ATRIAL FLUTTER [None]
  - PRESYNCOPE [None]
  - ATRIOVENTRICULAR BLOCK SECOND DEGREE [None]
  - TACHYARRHYTHMIA [None]
  - RESPIRATORY FAILURE [None]
  - CEREBRAL ISCHAEMIA [None]
  - SYNCOPE [None]
  - DISEASE PROGRESSION [None]
  - CIRCULATORY COLLAPSE [None]
  - MALAISE [None]
  - BODY TEMPERATURE INCREASED [None]
  - CATHETERISATION CARDIAC [None]
  - CARDIAC ARREST [None]
  - CARDIAC FAILURE ACUTE [None]
  - ATRIAL FIBRILLATION [None]
  - ORTHOSTATIC HYPOTENSION [None]
  - PULMONARY ARTERIAL HYPERTENSION [None]
  - DYSPNOEA [None]
  - PULMONARY ARTERIAL PRESSURE INCREASED [None]
  - PNEUMONIA [None]
  - RIGHT VENTRICULAR FAILURE [None]
  - URINARY TRACT INFECTION [None]
  - APNOEA [None]
